FAERS Safety Report 7817021-9 (Version None)
Quarter: 2011Q4

REPORT INFORMATION
  Report Type: 
  Country: None (occurrence: None)
  Receive Date: 20111017
  Receipt Date: 20111003
  Transmission Date: 20120403
  Serious: Yes (Hospitalization)
  Sender: FDA-Public Use
  Company Number: US-ELI_LILLY_AND_COMPANY-US201108009542

PATIENT
  Sex: Male
  Weight: 87.075 kg

DRUGS (1)
  1. ZYPREXA RELPREVV [Suspect]
     Indication: SCHIZOAFFECTIVE DISORDER
     Dosage: 405 MG, UNKNOWN
     Route: 030
     Dates: end: 20110804

REACTIONS (1)
  - TOXICITY TO VARIOUS AGENTS [None]
